FAERS Safety Report 19996000 (Version 3)
Quarter: 2021Q4

REPORT INFORMATION
  Report Type: Report from Study
  Country: JP (occurrence: JP)
  Receive Date: 20211026
  Receipt Date: 20211229
  Transmission Date: 20220303
  Serious: Yes (Other)
  Sender: FDA-Public Use
  Company Number: JP-ASTELLAS-2021JP020378

PATIENT
  Sex: Male

DRUGS (7)
  1. ENZALUTAMIDE [Suspect]
     Active Substance: ENZALUTAMIDE
     Indication: Prostate cancer
     Route: 048
     Dates: start: 20171102, end: 20210929
  2. CLOBETASONE BUTYRATE [Concomitant]
     Active Substance: CLOBETASONE BUTYRATE
     Indication: Dermatitis allergic
     Dosage: UNK UNK, UNKNOWN FREQ.
     Route: 061
     Dates: start: 20121213
  3. FLUFENAMIC ACID [Concomitant]
     Active Substance: FLUFENAMIC ACID
     Indication: Dermatitis allergic
     Dosage: UNK UNK, UNKNOWN FREQ.
     Route: 061
     Dates: start: 20121213
  4. SILODOSIN [Concomitant]
     Active Substance: SILODOSIN
     Indication: Benign prostatic hyperplasia
     Dosage: UNK UNK, UNKNOWN FREQ.
     Route: 048
     Dates: start: 201702
  5. DENOSUMAB [Concomitant]
     Active Substance: DENOSUMAB
     Indication: Prophylaxis
     Dosage: UNK UNK, UNKNOWN FREQ.
     Route: 058
     Dates: start: 20171016
  6. LEUPLIN [Concomitant]
     Active Substance: LEUPROLIDE ACETATE
     Indication: Antiandrogen therapy
     Dosage: 22.5 MG/DAY, UNKNOWN FREQ.
     Route: 058
     Dates: start: 20171130
  7. BILASTINE [Concomitant]
     Active Substance: BILASTINE
     Indication: Dermatitis allergic
     Dosage: UNK UNK, UNKNOWN FREQ.
     Route: 048
     Dates: start: 20171207

REACTIONS (1)
  - Electrocardiogram QT prolonged [Recovered/Resolved]

NARRATIVE: CASE EVENT DATE: 20210928
